FAERS Safety Report 6230644-6 (Version None)
Quarter: 2009Q2

REPORT INFORMATION
  Report Type: 
  Country: None (occurrence: None)
  Receive Date: 20090616
  Receipt Date: 20070815
  Transmission Date: 20091009
  Serious: Yes (Other)
  Sender: FDA-Public Use
  Company Number: US-ASTRAZENECA-2007UW09688

PATIENT
  Age: 15309 Day
  Sex: Female
  Weight: 73.5 kg

DRUGS (15)
  1. SEROQUEL [Suspect]
     Indication: BIPOLAR DISORDER
     Route: 048
     Dates: start: 19980601
  2. SEROQUEL [Suspect]
     Indication: DEPRESSION
     Route: 048
     Dates: start: 19980601
  3. SEROQUEL [Suspect]
     Route: 048
     Dates: start: 20000518
  4. SEROQUEL [Suspect]
     Route: 048
     Dates: start: 20000518
  5. SEROQUEL [Suspect]
     Dosage: 25MG, 1 Q. AM AND  2 PM
     Route: 048
     Dates: start: 20000819
  6. SEROQUEL [Suspect]
     Dosage: 25MG, 1 Q. AM AND  2 PM
     Route: 048
     Dates: start: 20000819
  7. SEROQUEL [Suspect]
     Dosage: 100 - 300 MG
     Route: 048
     Dates: start: 20010821
  8. SEROQUEL [Suspect]
     Dosage: 100 - 300 MG
     Route: 048
     Dates: start: 20010821
  9. SIMVASTATIN [Concomitant]
     Route: 048
     Dates: start: 19990331
  10. VYTORIN [Concomitant]
     Dosage: 10MG - 20 MG
     Route: 048
     Dates: start: 20070718
  11. ZETIA [Concomitant]
     Route: 048
     Dates: start: 20070718
  12. AVALIDE [Concomitant]
     Dosage: 300 - 12.5 MG DAILY
     Route: 048
     Dates: start: 20070718
  13. REMERON [Concomitant]
     Route: 048
     Dates: start: 20040331
  14. AMBIEN [Concomitant]
     Indication: SLEEP DISORDER
     Route: 048
     Dates: start: 20040520
  15. ATENOLOL [Concomitant]
     Route: 048

REACTIONS (5)
  - DIABETIC KETOACIDOSIS [None]
  - DIABETIC NEPHROPATHY [None]
  - DIABETIC NEUROPATHY [None]
  - TYPE 1 DIABETES MELLITUS [None]
  - TYPE 2 DIABETES MELLITUS [None]
